FAERS Safety Report 7330238-5 (Version None)
Quarter: 2011Q1

REPORT INFORMATION
  Report Type: 
  Country: None (occurrence: None)
  Receive Date: 20110303
  Receipt Date: 20110225
  Transmission Date: 20110831
  Serious: Yes (Other)
  Sender: FDA-Public Use
  Company Number: US-AMGEN-USASP2011011185

PATIENT
  Sex: Female

DRUGS (3)
  1. NEULASTA [Suspect]
     Indication: CHEMOTHERAPY
     Dosage: UNK
     Dates: start: 20110219
  2. TAXOTERE [Concomitant]
  3. CARBOPLATIN [Concomitant]

REACTIONS (1)
  - SYNCOPE [None]
